FAERS Safety Report 8060507-5 (Version None)
Quarter: 2012Q1

REPORT INFORMATION
  Report Type: 
  Country: None (occurrence: None)
  Receive Date: 20120120
  Receipt Date: 20120111
  Transmission Date: 20120608
  Serious: Yes (Hospitalization)
  Sender: FDA-Public Use
  Company Number: FR-BRISTOL-MYERS SQUIBB COMPANY-16349532

PATIENT
  Age: 82 Year
  Sex: Female

DRUGS (7)
  1. AMLODIPINE BESYLATE [Concomitant]
     Dosage: ONE DOSAGE
  2. AUGMENTIN '125' [Suspect]
  3. BISOPROLOL FUMARATE [Concomitant]
     Dosage: 2,5 MG (BISOPROLOL) ONE DOSAGE FORM DAILY
  4. ASPIRIN [Concomitant]
     Dosage: ONE DOSAGE FORM DAILY
  5. LEVOTHYROXINE SODIUM [Concomitant]
     Dosage: 1 DOSAGE
  6. LASIX [Concomitant]
     Dosage: 1 DOSAGE
  7. IRBESARTAN [Suspect]
     Dosage: STOPPED FROM 11-OCT-2011 TO 04-NOV-2011 RESUMED 300 MG, ONE TABLET
     Route: 048
     Dates: start: 20111106

REACTIONS (2)
  - ANGIOEDEMA [None]
  - PNEUMONIA [None]
